FAERS Safety Report 7518357-1 (Version None)
Quarter: 2011Q2

REPORT INFORMATION
  Report Type: 
  Country: None (occurrence: None)
  Receive Date: 20110523
  Receipt Date: 20110516
  Transmission Date: 20111010
  Serious: Yes (Other)
  Sender: FDA-Public Use
  Company Number: COL_08303_2011

PATIENT
  Age: 51 Year
  Sex: Female

DRUGS (2)
  1. COLGATE [Suspect]
     Indication: GINGIVITIS
     Dosage: (1 DF BID ORAL)
     Route: 048
     Dates: start: 20101214, end: 20110301
  2. COLGATE [Suspect]
     Indication: DENTAL PLAQUE
     Dosage: (1 DF BID ORAL)
     Route: 048
     Dates: start: 20101214, end: 20110301

REACTIONS (2)
  - DYSPEPSIA [None]
  - DISCOMFORT [None]
